FAERS Safety Report 7988816 (Version 2)
Quarter: 2012Q4

REPORT INFORMATION
  Report Type: 
  Country: CA (occurrence: CA)
  Receive Date: 20110613
  Receipt Date: 20121106
  Transmission Date: 20130627
  Serious: Yes (Other)
  Sender: FDA-Public Use
  Company Number: PHMT2007CA01622

PATIENT
  Sex: Male

DRUGS (6)
  1. SANDOSTATIN LAR [Suspect]
     Dosage: 20 mg every 4 weeks
     Route: 030
     Dates: start: 20060912
  2. SANDOSTATIN LAR [Suspect]
     Dosage: 30 mg every 4 weeks
     Route: 030
  3. PAXIL [Concomitant]
     Dosage: 12.5 mg/daily
  4. ZOPICLONE [Concomitant]
     Dosage: 7.5 mg at HS
  5. VENLAFAXINE EG [Concomitant]
  6. TRAZODONE [Concomitant]

REACTIONS (18)
  - Blood growth hormone increased [Unknown]
  - Lacrimation increased [Unknown]
  - Erythema [Unknown]
  - Blood pressure increased [Unknown]
  - Oedema peripheral [Unknown]
  - Anxiety [Unknown]
  - Insomnia [Unknown]
  - Pain in extremity [Unknown]
  - Malaise [Unknown]
  - Depressed mood [Unknown]
  - Polyuria [Unknown]
  - Polydipsia [Unknown]
  - Hyperhidrosis [Unknown]
  - Skin hypertrophy [Unknown]
  - Headache [Unknown]
  - Injection site pain [Unknown]
  - Rash pruritic [Unknown]
  - Pruritus [Unknown]
